FAERS Safety Report 8321729-9 (Version None)
Quarter: 2012Q2

REPORT INFORMATION
  Report Type: 
  Country: None (occurrence: None)
  Receive Date: 20120430
  Receipt Date: 20120424
  Transmission Date: 20120825
  Serious: Yes (Life-Threatening)
  Sender: FDA-Public Use
  Company Number: FR-ASTRAZENECA-2012SE26807

PATIENT
  Age: 27232 Day
  Sex: Female

DRUGS (4)
  1. TRACRIUM [Concomitant]
     Indication: INDUCTION OF ANAESTHESIA
  2. XYLOCAINE [Suspect]
     Indication: LOCAL ANAESTHESIA
     Route: 007
     Dates: start: 20120104, end: 20120104
  3. PROPOFOL [Concomitant]
     Indication: INDUCTION OF ANAESTHESIA
  4. SUFENTANIL CITRATE [Concomitant]
     Indication: ANAESTHESIA

REACTIONS (2)
  - BRONCHOSPASM [None]
  - ANAPHYLACTIC SHOCK [None]
